FAERS Safety Report 17961380 (Version 1)
Quarter: 2020Q2

REPORT INFORMATION
  Report Type: Spontaneous
  Country: US (occurrence: US)
  Receive Date: 20200630
  Receipt Date: 20200630
  Transmission Date: 20200714
  Serious: Yes (Hospitalization, Other)
  Sender: FDA-Public Use
  Company Number: US-AMGEN-USASP2020100383

PATIENT

DRUGS (1)
  1. CINACALCET HCL [Suspect]
     Active Substance: CINACALCET HYDROCHLORIDE
     Indication: HYPERPARATHYROIDISM TERTIARY
     Dosage: UNK
     Route: 065

REACTIONS (7)
  - Treatment noncompliance [Unknown]
  - Off label use [Unknown]
  - Nephrolithiasis [Unknown]
  - Hypercalcaemia [Unknown]
  - Blood creatinine increased [Unknown]
  - Drug tolerance [Unknown]
  - Drug ineffective for unapproved indication [Unknown]
